FAERS Safety Report 6924628-X (Version None)
Quarter: 2010Q3

REPORT INFORMATION
  Report Type: 
  Country: None (occurrence: None)
  Receive Date: 20100815
  Receipt Date: 20100616
  Transmission Date: 20110219
  Serious: No
  Sender: FDA-Public Use
  Company Number: A0863261A

PATIENT
  Sex: Female

DRUGS (2)
  1. TREXIMET [Suspect]
     Indication: PRODUCT USED FOR UNKNOWN INDICATION
  2. LAMICTAL [Suspect]
     Indication: PRODUCT USED FOR UNKNOWN INDICATION
     Dosage: 150MG UNKNOWN
     Route: 048

REACTIONS (3)
  - DIZZINESS [None]
  - EYE DISORDER [None]
  - ILL-DEFINED DISORDER [None]
